FAERS Safety Report 8143193-5 (Version None)
Quarter: 2012Q1

REPORT INFORMATION
  Report Type: 
  Country: None (occurrence: None)
  Receive Date: 20120217
  Receipt Date: 20120215
  Transmission Date: 20120608
  Serious: Yes (Other)
  Sender: FDA-Public Use
  Company Number: US-PFIZER INC-2012041263

PATIENT
  Sex: Male
  Weight: 114.29 kg

DRUGS (5)
  1. LISINOPRIL [Concomitant]
     Indication: RENAL DISORDER
     Dosage: UNK
  2. NIFEDIPINE [Concomitant]
     Dosage: UNK
  3. GLYBURIDE [Concomitant]
     Indication: DIABETES MELLITUS
     Dosage: UNK
  4. ASPIRIN [Concomitant]
     Dosage: 81 MG, UNK
  5. LIPITOR [Suspect]
     Indication: BLOOD CHOLESTEROL INCREASED
     Dosage: 40 MG, ONCE A DAY
     Route: 048
     Dates: start: 20120207, end: 20120215

REACTIONS (1)
  - VISION BLURRED [None]
